FAERS Safety Report 8162325-6 (Version None)
Quarter: 2012Q1

REPORT INFORMATION
  Report Type: 
  Country: None (occurrence: None)
  Receive Date: 20120224
  Receipt Date: 20120216
  Transmission Date: 20120608
  Serious: Yes (Death)
  Sender: FDA-Public Use
  Company Number: BR-BAYER-2012-016172

PATIENT
  Sex: Female
  Weight: 1.95 kg

DRUGS (1)
  1. YASMIN [Suspect]
     Dosage: UNK
     Route: 064
     Dates: start: 20110101

REACTIONS (1)
  - DEATH [None]
